FAERS Safety Report 5900512-5 (Version None)
Quarter: 2008Q3

REPORT INFORMATION
  Report Type: 
  Country: None (occurrence: None)
  Receive Date: 20080926
  Receipt Date: 20080915
  Transmission Date: 20090109
  Serious: Yes (Death, Other)
  Sender: FDA-Public Use
  Company Number: US-PFIZER INC-2008064005

PATIENT
  Sex: Male
  Weight: 72.6 kg

DRUGS (18)
  1. XANAX [Suspect]
     Indication: DEPRESSION
  2. ZYVOX [Suspect]
     Indication: INFECTION
     Dates: start: 20080711
  3. CELEXA [Concomitant]
  4. MUCINEX [Concomitant]
  5. VITAMIN B-12 [Concomitant]
  6. ALLOPURINOL [Concomitant]
  7. AMIODARONE HCL [Concomitant]
  8. ACETYLSALICYLIC ACID SRT [Concomitant]
  9. FUROSEMIDE [Concomitant]
  10. LEVOTHROID [Concomitant]
  11. MEGACE [Concomitant]
  12. MULTI-VITAMINS [Concomitant]
  13. POTASSIUM CHLORIDE [Concomitant]
  14. PROTONIX [Concomitant]
  15. THIAMINE HCL [Concomitant]
  16. VYTORIN [Concomitant]
  17. DOBUTAMINE HCL [Concomitant]
  18. ALL OTHER THERAPEUTIC PRODUCTS [Concomitant]

REACTIONS (5)
  - BLOOD POTASSIUM INCREASED [None]
  - CARDIAC FAILURE CONGESTIVE [None]
  - CONGESTIVE CARDIOMYOPATHY [None]
  - INFECTION [None]
  - RENAL FAILURE [None]
